FAERS Safety Report 18963294 (Version 3)
Quarter: 2021Q1

REPORT INFORMATION
  Report Type: Spontaneous
  Country: AR (occurrence: AR)
  Receive Date: 20210303
  Receipt Date: 20210318
  Transmission Date: 20210420
  Serious: Yes (Other)
  Sender: FDA-Public Use
  Company Number: AR-AMGEN-ARGSP2021032606

PATIENT
  Age: 77 Year
  Sex: Female

DRUGS (4)
  1. LEVOCAR [CARBIDOPA;LEVODOPA] [Concomitant]
     Dosage: UNK
  2. IBANDRONATO [Concomitant]
     Dosage: UNK
  3. FILARTROS [Concomitant]
     Active Substance: LEFLUNOMIDE
     Indication: ARTHRITIS
     Dosage: UNK
     Dates: start: 20061020
  4. ENBREL [Suspect]
     Active Substance: ETANERCEPT
     Indication: RHEUMATOID ARTHRITIS
     Dosage: 50 MG, WEEKLY
     Route: 065
     Dates: start: 20061020

REACTIONS (8)
  - Eye disorder [Not Recovered/Not Resolved]
  - Parkinson^s disease [Not Recovered/Not Resolved]
  - Hypoacusis [Not Recovered/Not Resolved]
  - Miosis [Unknown]
  - Device failure [Not Recovered/Not Resolved]
  - Feeling abnormal [Not Recovered/Not Resolved]
  - Pain [Not Recovered/Not Resolved]
  - Product dose omission issue [Not Recovered/Not Resolved]
